FAERS Safety Report 12802737 (Version 3)
Quarter: 2016Q4

REPORT INFORMATION
  Report Type: Spontaneous
  Country: US (occurrence: US)
  Receive Date: 20161003
  Receipt Date: 20161230
  Transmission Date: 20170207
  Serious: Yes (Other)
  Sender: FDA-Public Use
  Company Number: US-009507513-1609USA014155

PATIENT
  Age: 19 Year
  Sex: Male
  Weight: 64 kg

DRUGS (8)
  1. GRASTEK [Suspect]
     Active Substance: PHLEUM PRATENSE POLLEN
     Dosage: UNK
     Dates: start: 20160103, end: 20161025
  2. NASONEX [Concomitant]
     Active Substance: MOMETASONE FUROATE
     Dosage: UNK
  3. FLONASE [Concomitant]
     Active Substance: FLUTICASONE PROPIONATE
     Dosage: UNK
  4. RAGWITEK [Suspect]
     Active Substance: AMBROSIA ARTEMISIIFOLIA POLLEN
     Indication: RHINITIS ALLERGIC
     Dosage: UNK,12 AMB
     Route: 060
     Dates: start: 20150604, end: 20151015
  5. EPIPEN [Concomitant]
     Active Substance: EPINEPHRINE
     Dosage: UNK
  6. ZYRTEC [Concomitant]
     Active Substance: CETIRIZINE HYDROCHLORIDE
     Dosage: UNK
  7. PROAIR HFA [Concomitant]
     Active Substance: ALBUTEROL SULFATE
     Dosage: UNK
  8. GRASTEK [Suspect]
     Active Substance: PHLEUM PRATENSE POLLEN
     Indication: RHINITIS ALLERGIC
     Dosage: UNK UNK, QD
     Route: 060
     Dates: start: 201606, end: 20160822

REACTIONS (6)
  - Choking [Recovered/Resolved]
  - Foreign body [Recovered/Resolved]
  - Throat tightness [Recovered/Resolved]
  - Oesophageal food impaction [Recovered/Resolved]
  - Eosinophilic oesophagitis [Recovered/Resolved]
  - Eosinophilic oesophagitis [Unknown]

NARRATIVE: CASE EVENT DATE: 2016
